FAERS Safety Report 9832649 (Version 2)
Quarter: 2014Q1

REPORT INFORMATION
  Report Type: Report from Study
  Country: FR (occurrence: FR)
  Receive Date: 20140121
  Receipt Date: 20140128
  Transmission Date: 20141002
  Serious: Yes (Death, Hospitalization)
  Sender: FDA-Public Use
  Company Number: FR-TEVA-457220ISR

PATIENT
  Age: 67 Year
  Sex: Female

DRUGS (29)
  1. MYOCET [Suspect]
     Dates: start: 20131231, end: 20131231
  2. CARBOPLATIN [Suspect]
     Dates: start: 20131231, end: 20131231
  3. LOXEN [Concomitant]
     Indication: HYPERTENSION
     Route: 048
  4. NOVORAPID [Concomitant]
     Indication: DIABETES MELLITUS
  5. ACTISKENAN [Concomitant]
     Route: 048
  6. SOLUPRED [Concomitant]
     Route: 048
  7. DOLIPRANE [Concomitant]
     Route: 048
  8. DUROGESIC [Concomitant]
     Route: 062
  9. PRIMPERAN [Concomitant]
     Indication: NAUSEA
     Route: 042
  10. MORPHINE [Concomitant]
     Route: 042
  11. MORPHINE [Concomitant]
     Route: 042
  12. IMIPENEM CILASTATINE 500MG [Concomitant]
     Route: 042
  13. CEFTRIAXONE 100MG [Concomitant]
     Route: 042
  14. VANCOMYCINE 500MG [Concomitant]
     Route: 042
  15. PERFALGAN 1G [Concomitant]
     Route: 042
  16. ZOPHREN 8MG [Concomitant]
     Route: 048
  17. EUPANTOL 40MG [Concomitant]
     Route: 042
  18. FUROSEMIDE 20MG [Concomitant]
     Route: 042
  19. METHYLPREDNISOLONE 120MG [Concomitant]
     Route: 042
  20. DEBRIDAT 50MG [Concomitant]
     Route: 042
  21. DECAN [Concomitant]
     Route: 042
  22. CERNEVIT [Concomitant]
     Route: 042
  23. GLUCIDION 1000ML [Concomitant]
     Route: 042
  24. LANTUS 100UI/ML [Concomitant]
     Route: 058
  25. DAFALGANHOP 1G [Concomitant]
     Route: 048
  26. OCTREOTIDE 500MG/1ML [Concomitant]
     Route: 042
  27. MIDAZOLAM 5MG/5ML [Concomitant]
     Route: 042
  28. SCOBUREN 20MG/ML [Concomitant]
     Route: 042
  29. NEULASTA 6MG [Concomitant]
     Dates: start: 20131231

REACTIONS (16)
  - Febrile bone marrow aplasia [Fatal]
  - Vomiting [Fatal]
  - Intestinal obstruction [Fatal]
  - Bacterial sepsis [Fatal]
  - Thrombocytopenia [Fatal]
  - Cholestasis [Fatal]
  - Pleural effusion [Fatal]
  - Purpura [Fatal]
  - Oedema peripheral [Fatal]
  - Bacterial infection [Fatal]
  - Disseminated intravascular coagulation [Fatal]
  - Asthenia [Fatal]
  - Malnutrition [Fatal]
  - Renal failure [Fatal]
  - Diarrhoea [Unknown]
  - Pyrexia [Unknown]
